FAERS Safety Report 11855513 (Version 1)
Quarter: 2015Q4

REPORT INFORMATION
  Report Type: Spontaneous
  Country: US (occurrence: US)
  Receive Date: 20151221
  Receipt Date: 20151221
  Transmission Date: 20160305
  Serious: Yes (Other)
  Sender: FDA-Public Use
  Company Number: US-BEH-2015056810

PATIENT
  Sex: Female
  Weight: 112 kg

DRUGS (20)
  1. GAVISCON [Concomitant]
     Active Substance: ALUMINUM HYDROXIDE\MAGNESIUM CARBONATE
  2. ALLEGRA [Concomitant]
     Active Substance: FEXOFENADINE HYDROCHLORIDE
  3. DIPHENHYDRAMINE. [Concomitant]
     Active Substance: DIPHENHYDRAMINE
  4. LIDOCAINE. [Concomitant]
     Active Substance: LIDOCAINE
  5. TIKOSYN [Concomitant]
     Active Substance: DOFETILIDE
  6. FLONASE [Concomitant]
     Active Substance: FLUTICASONE PROPIONATE
  7. ACETAMINOPHEN. [Concomitant]
     Active Substance: ACETAMINOPHEN
  8. ASMANEX [Concomitant]
     Active Substance: MOMETASONE FUROATE
  9. HIZENTRA [Suspect]
     Active Substance: HUMAN IMMUNOGLOBULIN G
     Indication: IMMUNODEFICIENCY COMMON VARIABLE
     Dosage: 4 GM 20 ML VIAL
     Route: 058
     Dates: start: 20150701
  10. EPIPEN [Concomitant]
     Active Substance: EPINEPHRINE
  11. AZELASTINE [Concomitant]
     Active Substance: AZELASTINE
  12. LEVOTHYROXINE. [Concomitant]
     Active Substance: LEVOTHYROXINE
  13. CALTRATE [Concomitant]
     Active Substance: CALCIUM CARBONATE
  14. DILTIAZEM [Concomitant]
     Active Substance: DILTIAZEM
  15. CENTRUM SILVER [Concomitant]
     Active Substance: MINERALS\VITAMINS
  16. CRESTOR [Concomitant]
     Active Substance: ROSUVASTATIN CALCIUM
  17. COMBIVENT [Concomitant]
     Active Substance: ALBUTEROL SULFATE\IPRATROPIUM BROMIDE
  18. OXYBUTYNIN [Concomitant]
     Active Substance: OXYBUTYNIN
  19. GLUCOSAMINE [Concomitant]
     Active Substance: GLUCOSAMINE
  20. VITAMIN B [Concomitant]
     Active Substance: VITAMIN B

REACTIONS (4)
  - Infusion site haemorrhage [Unknown]
  - Atrial fibrillation [Unknown]
  - Urine output increased [Unknown]
  - Headache [Recovered/Resolved]
